FAERS Safety Report 6382968-X (Version None)
Quarter: 2009Q3

REPORT INFORMATION
  Report Type: 
  Country: None (occurrence: None)
  Receive Date: 20090930
  Receipt Date: 20090922
  Transmission Date: 20100115
  Serious: Yes (Other)
  Sender: FDA-Public Use
  Company Number: CA-ABBOTT-09P-028-0595005-00

PATIENT
  Sex: Female
  Weight: 72.64 kg

DRUGS (5)
  1. HUMIRA [Suspect]
     Indication: PSORIATIC ARTHROPATHY
     Route: 058
     Dates: start: 20090120
  2. CALCIUM AND VITAMIN D [Concomitant]
     Indication: DRUG USE FOR UNKNOWN INDICATION
  3. DERMOVATE [Concomitant]
     Indication: EXCORIATION
  4. BETADERM [Concomitant]
     Indication: DRUG USE FOR UNKNOWN INDICATION
  5. DOVANEX [Concomitant]
     Indication: DRUG USE FOR UNKNOWN INDICATION

REACTIONS (4)
  - CELLULITIS [None]
  - CHOLELITHIASIS [None]
  - EXCORIATION [None]
  - GALLBLADDER PAIN [None]
